FAERS Safety Report 4385048-8 (Version None)
Quarter: 2004Q2

REPORT INFORMATION
  Report Type: 
  Country: None (occurrence: None)
  Receive Date: 20040625
  Receipt Date: 20040618
  Transmission Date: 20050107
  Serious: Yes (Life-Threatening, Hospitalization)
  Sender: FDA-Public Use
  Company Number: FR-GLAXOSMITHKLINE-B0336207A

PATIENT
  Age: 17 Year
  Sex: Female

DRUGS (6)
  1. CLAMOXYL [Suspect]
     Indication: ANTIBACTERIAL PROPHYLAXIS
     Dosage: 1G PER DAY
     Route: 042
     Dates: start: 20030601, end: 20030601
  2. ATARAX [Concomitant]
     Indication: ANAESTHESIA
     Dosage: 50MG SINGLE DOSE
     Dates: start: 20030601, end: 20030601
  3. TAGAMET [Concomitant]
     Indication: ANAESTHESIA
     Dosage: 200MG SINGLE DOSE
     Route: 048
     Dates: start: 20030601, end: 20030601
  4. HYPNOVEL [Concomitant]
     Indication: ANAESTHESIA
     Dates: start: 20030601, end: 20030601
  5. ULTIVA [Concomitant]
     Indication: ANAESTHESIA
     Dates: start: 20030601, end: 20030601
  6. DIPRIVAN [Concomitant]
     Indication: ANAESTHESIA
     Dates: start: 20030601, end: 20030601

REACTIONS (6)
  - ANAPHYLACTIC SHOCK [None]
  - BRONCHOSPASM [None]
  - HYPOTENSION [None]
  - IMMUNOGLOBULINS ABNORMAL [None]
  - PNEUMOTHORAX [None]
  - TACHYCARDIA [None]
